FAERS Safety Report 22949130 (Version 3)
Quarter: 2023Q4

REPORT INFORMATION
  Report Type: Report from Study
  Country: US (occurrence: US)
  Receive Date: 20230915
  Receipt Date: 20231003
  Transmission Date: 20240110
  Serious: Yes (Death, Other)
  Sender: FDA-Public Use
  Company Number: US-ACADIA PHARMACEUTICALS INC.-ACA-2023-PIM-003965

PATIENT
  Age: 84 Year
  Sex: Male

DRUGS (22)
  1. NUPLAZID [Suspect]
     Active Substance: PIMAVANSERIN TARTRATE
     Indication: Parkinson^s disease psychosis
     Dosage: 34 MILLIGRAM, QD
     Route: 048
     Dates: start: 20230831, end: 20230918
  2. ALLOPURINOL [Concomitant]
     Active Substance: ALLOPURINOL
  3. AMLODIPINE [Concomitant]
     Active Substance: AMLODIPINE BESYLATE
  4. B COMPLEX [VITAMIN B NOS] [Concomitant]
  5. ESCITALOPRAM OXALATE [Concomitant]
     Active Substance: ESCITALOPRAM OXALATE
  6. FINASTERIDE [Concomitant]
     Active Substance: FINASTERIDE
  7. FOLIC ACID [Concomitant]
     Active Substance: FOLIC ACID
  8. GABAPENTIN [Concomitant]
     Active Substance: GABAPENTIN
  9. LOSARTAN [Concomitant]
     Active Substance: LOSARTAN
  10. POTASSIUM [Concomitant]
     Active Substance: POTASSIUM
  11. MAGNESIUM [Concomitant]
     Active Substance: MAGNESIUM
  12. MEMANTINE [Concomitant]
     Active Substance: MEMANTINE
  13. METFORMIN [Concomitant]
     Active Substance: METFORMIN HYDROCHLORIDE
  14. MIRTAZAPINE [Concomitant]
     Active Substance: MIRTAZAPINE
  15. MYRBETRIQ [Concomitant]
     Active Substance: MIRABEGRON
  16. OCUVITE [ASCORBIC ACID;RETINOL;TOCOPHEROL] [Concomitant]
  17. OMEPRAZOLE [Concomitant]
     Active Substance: OMEPRAZOLE
  18. RASAGILINE MESYLATE [Concomitant]
     Active Substance: RASAGILINE MESYLATE
  19. RISPERIDONE [Concomitant]
     Active Substance: RISPERIDONE
  20. RYTARY [Concomitant]
     Active Substance: CARBIDOPA\LEVODOPA
  21. TAMSULOSIN [Concomitant]
     Active Substance: TAMSULOSIN
  22. TRIAMCINOLONE ACETONIDE [Concomitant]
     Active Substance: TRIAMCINOLONE ACETONIDE

REACTIONS (5)
  - Death [Fatal]
  - Unresponsive to stimuli [Not Recovered/Not Resolved]
  - General physical health deterioration [Not Recovered/Not Resolved]
  - Hypotension [Not Recovered/Not Resolved]
  - Tachycardia [Not Recovered/Not Resolved]

NARRATIVE: CASE EVENT DATE: 20230918
